FAERS Safety Report 24910654 (Version 1)
Quarter: 2025Q1

REPORT INFORMATION
  Report Type: Spontaneous
  Country: IE (occurrence: IE)
  Receive Date: 20250131
  Receipt Date: 20250131
  Transmission Date: 20250409
  Serious: Yes (Hospitalization)
  Sender: PFIZER
  Company Number: IE-PFIZER INC-202500020212

PATIENT
  Age: 66 Year
  Sex: Female

DRUGS (1)
  1. BESPONSA [Suspect]
     Active Substance: INOTUZUMAB OZOGAMICIN
     Indication: Acute lymphocytic leukaemia

REACTIONS (6)
  - Venoocclusive disease [Recovering/Resolving]
  - Weight increased [Recovering/Resolving]
  - Abdominal tenderness [Recovering/Resolving]
  - Dyspnoea [Recovering/Resolving]
  - Ascites [Recovering/Resolving]
  - Dry skin [Recovering/Resolving]

NARRATIVE: CASE EVENT DATE: 20250101
